FAERS Safety Report 8783097 (Version 1)
Quarter: 2012Q4

REPORT INFORMATION
  Report Type: Report from Study
  Country: CA (occurrence: CA)
  Receive Date: 20120913
  Receipt Date: 20120913
  Transmission Date: 20130627
  Serious: Yes (Other)
  Sender: FDA-Public Use
  Company Number: CA-JNJFOC-20120903139

PATIENT
  Age: 26 Year
  Sex: Female
  Weight: 49 kg

DRUGS (2)
  1. REMICADE [Suspect]
     Indication: CROHN^S DISEASE
     Route: 042
     Dates: start: 20120202
  2. REMICADE [Suspect]
     Indication: CROHN^S DISEASE
     Route: 042
     Dates: start: 20120830

REACTIONS (4)
  - Tremor [Recovered/Resolved]
  - Paraesthesia [Recovered/Resolved]
  - Asthenia [Recovered/Resolved]
  - Dysstasia [Recovered/Resolved]
